FAERS Safety Report 5890127-X (Version None)
Quarter: 2008Q3

REPORT INFORMATION
  Report Type: 
  Country: None (occurrence: None)
  Receive Date: 20080919
  Receipt Date: 20080825
  Transmission Date: 20090109
  Serious: Yes (Hospitalization)
  Sender: FDA-Public Use
  Company Number: US-B.I. PHARMACEUTICALS,INC./RIDGEFIELD-2008-BP-14461BP

PATIENT
  Age: 45 Year
  Sex: Female

DRUGS (5)
  1. MIRAPEX [Suspect]
     Indication: PARKINSON'S DISEASE
     Route: 048
     Dates: start: 19980101, end: 20050114
  2. MIRAPEX [Suspect]
     Route: 048
     Dates: start: 19980101
  3. SINEMET [Concomitant]
     Dates: start: 20030801, end: 20060701
  4. SINEMET [Concomitant]
     Dates: start: 19980101, end: 19980101
  5. STALEVO 100 [Concomitant]
     Dates: start: 20060701

REACTIONS (3)
  - PAIN [None]
  - PATHOLOGICAL GAMBLING [None]
  - SUICIDE ATTEMPT [None]
